FAERS Safety Report 6841795-7 (Version None)
Quarter: 2010Q3

REPORT INFORMATION
  Report Type: 
  Country: None (occurrence: None)
  Receive Date: 20100714
  Receipt Date: 20100709
  Transmission Date: 20110219
  Serious: Yes (Hospitalization)
  Sender: FDA-Public Use
  Company Number: US-MERCK-0909USA01540

PATIENT
  Age: 66 Year
  Sex: Female

DRUGS (1)
  1. FOSAMAX [Suspect]
     Indication: OSTEOPOROSIS
     Route: 048
     Dates: start: 19950601, end: 20080101

REACTIONS (28)
  - ABDOMINAL PAIN UPPER [None]
  - ADVERSE EVENT [None]
  - ASTHENIA [None]
  - ATRIAL FIBRILLATION [None]
  - BONE DENSITY DECREASED [None]
  - BONE FORMATION DECREASED [None]
  - CARDIAC FLUTTER [None]
  - CHRONIC OBSTRUCTIVE PULMONARY DISEASE [None]
  - CHRONIC SINUSITIS [None]
  - DECREASED APPETITE [None]
  - DENTAL CARIES [None]
  - DIARRHOEA [None]
  - FISTULA DISCHARGE [None]
  - GLUCOSE TOLERANCE IMPAIRED [None]
  - HAEMOPTYSIS [None]
  - HAEMORRHOIDAL HAEMORRHAGE [None]
  - HYPERSENSITIVITY [None]
  - IMPAIRED HEALING [None]
  - NAUSEA [None]
  - NIGHT SWEATS [None]
  - ORAL INFECTION [None]
  - OSTEOMYELITIS [None]
  - OSTEONECROSIS OF JAW [None]
  - OSTEOPENIA [None]
  - PYOGENIC GRANULOMA [None]
  - SOFT TISSUE DISORDER [None]
  - TOOTH EROSION [None]
  - WEIGHT DECREASED [None]
